FAERS Safety Report 9722257 (Version 2)
Quarter: 2013Q4

REPORT INFORMATION
  Report Type: Report from Study
  Country: US (occurrence: US)
  Receive Date: 20131202
  Receipt Date: 20131202
  Transmission Date: 20140711
  Serious: Yes (Other)
  Sender: FDA-Public Use
  Company Number: US-JNJFOC-20130309971

PATIENT
  Age: 23 Year
  Sex: Female

DRUGS (3)
  1. REMICADE [Suspect]
     Indication: CROHN^S DISEASE
     Route: 042
  2. 6-MP [Suspect]
     Indication: CROHN^S DISEASE
     Route: 065
  3. HUMIRA [Suspect]
     Indication: CROHN^S DISEASE
     Route: 065

REACTIONS (7)
  - Clostridium difficile infection [Recovered/Resolved]
  - Investigation [Unknown]
  - Crohn^s disease [Unknown]
  - Drug ineffective [Unknown]
  - Constipation [Recovered/Resolved]
  - Fatigue [Unknown]
  - Arthralgia [Unknown]
